FAERS Safety Report 4549246-2 (Version None)
Quarter: 2005Q1

REPORT INFORMATION
  Report Type: 
  Country: None (occurrence: None)
  Receive Date: 20041230
  Receipt Date: 20040526
  Transmission Date: 20050727
  Serious: Yes (Death)
  Sender: FDA-Public Use
  Company Number: 04-05-0763

PATIENT
  Age: 50 Year
  Sex: Female
  Weight: 92.0802 kg

DRUGS (4)
  1. CLOZAPINE [Suspect]
     Indication: SCHIZOAFFECTIVE DISORDER
     Dosage: 200MG TID ORAL
     Route: 048
     Dates: start: 20030212, end: 20040516
  2. TYLENOL W/ CODEINE NO. 3 [Suspect]
     Indication: TOOTH ABSCESS
     Dosage: 2Q4H PRN
     Dates: start: 20040514, end: 20040516
  3. DIAZEPAM [Concomitant]
  4. DEPAKOTE [Concomitant]

REACTIONS (1)
  - INTENTIONAL MISUSE [None]
